FAERS Safety Report 13092828 (Version 1)
Quarter: 2017Q1

REPORT INFORMATION
  Report Type: Spontaneous
  Country: US (occurrence: US)
  Receive Date: 20170106
  Receipt Date: 20170106
  Transmission Date: 20170428
  Serious: No
  Sender: FDA-Public Use
  Company Number: US-JNJFOC-20161212639

PATIENT
  Age: 58 Year
  Sex: Female

DRUGS (2)
  1. YONDELIS [Suspect]
     Active Substance: TRABECTEDIN
     Indication: EWING^S SARCOMA METASTATIC
     Route: 042
     Dates: start: 20161213
  2. YONDELIS [Suspect]
     Active Substance: TRABECTEDIN
     Indication: EWING^S SARCOMA METASTATIC
     Route: 042
     Dates: start: 20161108

REACTIONS (4)
  - Off label use [Unknown]
  - Product use issue [Unknown]
  - Blood bilirubin increased [Recovering/Resolving]
  - Liver function test increased [Recovering/Resolving]

NARRATIVE: CASE EVENT DATE: 2016
